FAERS Safety Report 4294134-2 (Version None)
Quarter: 2004Q1

REPORT INFORMATION
  Report Type: 
  Country: None (occurrence: None)
  Receive Date: 20040212
  Receipt Date: 20040212
  Transmission Date: 20041129
  Serious: Yes (Death, Hospitalization)
  Sender: FDA-Public Use
  Company Number: None

PATIENT
  Age: 42 Year
  Sex: Male

DRUGS (1)
  1. TUBERCULIN PURIFIED PROTEIN AVENTIS PASTEUR [Suspect]

REACTIONS (5)
  - ERYTHEMA [None]
  - INDURATION [None]
  - PRURITUS [None]
  - SKIN IRRITATION [None]
  - SWELLING [None]
